FAERS Safety Report 23753910 (Version 1)
Quarter: 2024Q2

REPORT INFORMATION
  Report Type: Spontaneous
  Country: US (occurrence: US)
  Receive Date: 20240417
  Receipt Date: 20240417
  Transmission Date: 20240716
  Serious: No
  Sender: FDA-Public Use
  Company Number: US-Dermavant-001102

PATIENT

DRUGS (1)
  1. TAPINAROF [Suspect]
     Active Substance: TAPINAROF
     Route: 061

REACTIONS (2)
  - Off label use [Unknown]
  - Headache [Unknown]
